FAERS Safety Report 9734971 (Version 3)
Quarter: 2014Q1

REPORT INFORMATION
  Report Type: Spontaneous
  Country: US (occurrence: US)
  Receive Date: 20131206
  Receipt Date: 20140221
  Transmission Date: 20141002
  Serious: No
  Sender: FDA-Public Use
  Company Number: US-PFIZER INC-2013349314

PATIENT
  Age: 50 Year
  Sex: Female
  Weight: 99.77 kg

DRUGS (15)
  1. LYRICA [Suspect]
     Indication: FIBROMYALGIA
     Dosage: 150 MG, 2X/DAY
     Route: 048
     Dates: start: 2007, end: 2010
  2. LYRICA [Suspect]
     Dosage: 150 MG, 3X/DAY
     Route: 048
     Dates: start: 2010
  3. HYDROCHLOROTHIAZIDE [Concomitant]
     Dosage: 25 MG, 1X/DAY
  4. ATENOLOL [Concomitant]
     Dosage: 50 MG, 1X/DAY
  5. NEXIUM [Concomitant]
     Dosage: 40 MG, 1X/DAY
  6. FLEXERIL [Concomitant]
     Dosage: 10 MG, AS NEEDED
  7. PRAVASTATIN [Concomitant]
     Dosage: 40 MG, 1X/DAY
  8. MOBIC [Concomitant]
     Dosage: 7.5 MG, 1X/DAY
  9. KETOPROFEN [Concomitant]
     Dosage: 50 MG, 4X/DAY
  10. PROMETHAZINE [Concomitant]
     Dosage: 25 MG, AS NEEDED
     Route: 048
  11. PROMETHAZINE [Concomitant]
     Dosage: 25 MG, AS NEEDED
  12. NORCO [Concomitant]
     Dosage: 5/325 MG, AS NEEDED
  13. VITAMIN D [Concomitant]
     Dosage: 50000 UNITS, WEEKLY
  14. FLUTICASONE [Concomitant]
     Dosage: 50 MG, UNK
     Route: 045
  15. CLARITIN [Concomitant]
     Dosage: 10 MG, 1X/DAY

REACTIONS (4)
  - Drug withdrawal syndrome [Recovered/Resolved]
  - Influenza like illness [Recovered/Resolved]
  - Feeling abnormal [Recovered/Resolved]
  - Fibromyalgia [Unknown]
